FAERS Safety Report 7655445-3 (Version None)
Quarter: 2011Q3

REPORT INFORMATION
  Report Type: 
  Country: None (occurrence: None)
  Receive Date: 20110801
  Receipt Date: 20110714
  Transmission Date: 20111222
  Serious: Yes (Hospitalization, Other)
  Sender: FDA-Public Use
  Company Number: 2011MA008881

PATIENT
  Age: 17 Year
  Sex: Male

DRUGS (3)
  1. DICLOFENAC SODIUM [Suspect]
     Indication: PAIN
  2. DIPYRONE (METAMIZOLE SODIUM) [Suspect]
     Indication: PAIN
     Dosage: 30 GTT;QID
  3. TILIDINE (TILIDINE) [Suspect]
     Indication: PAIN

REACTIONS (11)
  - GENERAL PHYSICAL HEALTH DETERIORATION [None]
  - ALANINE AMINOTRANSFERASE INCREASED [None]
  - AGRANULOCYTOSIS [None]
  - LEUKOPENIA [None]
  - NORMOCHROMIC NORMOCYTIC ANAEMIA [None]
  - MALAISE [None]
  - NEUTROPENIA [None]
  - PYREXIA [None]
  - CHILLS [None]
  - ODYNOPHAGIA [None]
  - C-REACTIVE PROTEIN INCREASED [None]
